FAERS Safety Report 16478367 (Version 13)
Quarter: 2024Q2

REPORT INFORMATION
  Report Type: Spontaneous
  Country: IN (occurrence: IN)
  Receive Date: 20190626
  Receipt Date: 20240528
  Transmission Date: 20240716
  Serious: Yes (Other)
  Sender: FDA-Public Use
  Company Number: IN-PFIZER INC-2017265096

PATIENT
  Age: 53 Year
  Sex: Female

DRUGS (7)
  1. PALBOCICLIB [Suspect]
     Active Substance: PALBOCICLIB
     Indication: Breast cancer metastatic
     Dosage: 125 MG, CYCLIC (ONCE A DAY FOR 21 DAYS, THEN STOP FOR 7 DAYS)
     Route: 048
     Dates: start: 20170124
  2. FEMARA [Concomitant]
     Active Substance: LETROZOLE
     Dosage: 2.5 MG, 1X/DAY
     Route: 048
     Dates: start: 201701
  3. GOSERELIN [Concomitant]
     Active Substance: GOSERELIN
     Dosage: 10.8 MG, UNK
     Route: 058
     Dates: start: 201701
  4. CALCIUM CARBONATE\CHOLECALCIFEROL [Concomitant]
     Active Substance: CALCIUM CARBONATE\CHOLECALCIFEROL
     Dosage: 500 MG, 2X/DAY
  5. CALCIUM CARBONATE\CHOLECALCIFEROL [Concomitant]
     Active Substance: CALCIUM CARBONATE\CHOLECALCIFEROL
     Dosage: 500 MG, 1X/DAY FOR 3 MONTHS
  6. CALCIROL [Concomitant]
     Dosage: 60000 IU, MONTHLY (WITH MILK) FOR 3 MONTHS
  7. ZOLEDRONIC ACID [Concomitant]
     Active Substance: ZOLEDRONIC ACID
     Dosage: Q3MONTHLY
     Dates: start: 201701

REACTIONS (19)
  - Spinal compression fracture [Unknown]
  - Full blood count abnormal [Unknown]
  - Breast mass [Unknown]
  - Dermatitis [Unknown]
  - Musculoskeletal pain [Unknown]
  - Osteopenia [Unknown]
  - Pain [Unknown]
  - Blood potassium decreased [Unknown]
  - Blood calcium abnormal [Unknown]
  - Blood potassium abnormal [Unknown]
  - Inflammation [Unknown]
  - Mammary duct ectasia [Unknown]
  - Mastitis [Unknown]
  - Mouth ulceration [Unknown]
  - Fatigue [Unknown]
  - White blood cell count decreased [Unknown]
  - Neutrophil count decreased [Unknown]
  - Alanine aminotransferase increased [Unknown]
  - Aspartate aminotransferase increased [Unknown]

NARRATIVE: CASE EVENT DATE: 20190611
